FAERS Safety Report 8971626 (Version 1)
Quarter: 2012Q4

REPORT INFORMATION
  Report Type: Report from Study
  Country: JP (occurrence: JP)
  Receive Date: 20121217
  Receipt Date: 20121217
  Transmission Date: 20130627
  Serious: Yes (Other)
  Sender: FDA-Public Use
  Company Number: JP-VERTEX PHARMACEUTICALS INC.-2012-026161

PATIENT
  Age: 47 Year
  Sex: Male

DRUGS (11)
  1. VX-950 (TELAPREVIR) [Suspect]
     Indication: CHRONIC HEPATITIS C
     Dosage: 2250 mg, qd
     Route: 048
     Dates: start: 20120915, end: 20121003
  2. VX-950 (TELAPREVIR) [Suspect]
     Dosage: 1500 mg, qd
     Route: 048
     Dates: start: 20121004, end: 20121206
  3. RIBAVIRIN [Concomitant]
     Dosage: 800 mg, qd
     Route: 048
     Dates: start: 20120915, end: 20121010
  4. RIBAVIRIN [Concomitant]
     Dosage: 600 mg, qd
     Route: 048
     Dates: start: 20121011
  5. PEGINTERFERON ALFA-2B [Concomitant]
     Dosage: 1.5 ?g/kg, qw
     Route: 058
     Dates: start: 20120915, end: 20120915
  6. PEGINTERFERON ALFA-2B [Concomitant]
     Dosage: 0.75 ?g/kg, qw
     Route: 058
     Dates: start: 20120922, end: 20120922
  7. PEGINTERFERON ALFA-2B [Concomitant]
     Dosage: 1.0 ?g/kg, qw
     Route: 058
     Dates: start: 20120928, end: 20121122
  8. PEGINTERFERON ALFA-2B [Concomitant]
     Dosage: 0.75 ?g/kg, qw
     Route: 058
     Dates: start: 20121129, end: 20121129
  9. FEBURIC [Concomitant]
     Dosage: 20 mg, qd
     Route: 048
     Dates: start: 20120927
  10. PRIMPERAN [Concomitant]
     Dosage: UNK, prn
     Route: 048
     Dates: start: 20120927
  11. XYZAL [Concomitant]
     Dosage: 5 mg, qd
     Route: 048

REACTIONS (1)
  - Decreased appetite [Recovered/Resolved]
